FAERS Safety Report 10168213 (Version 1)
Quarter: 2014Q2

REPORT INFORMATION
  Report Type: Spontaneous
  Country: CN (occurrence: CN)
  Receive Date: 20140512
  Receipt Date: 20140512
  Transmission Date: 20141212
  Serious: Yes (Other)
  Sender: FDA-Public Use
  Company Number: CN-PFIZER INC-2014126773

PATIENT
  Age: 32 Year
  Sex: Male
  Weight: 85 kg

DRUGS (1)
  1. SOLU-MEDROL [Suspect]
     Dosage: 2000 MG, DAILY
     Route: 042
     Dates: start: 20140422, end: 20140425

REACTIONS (3)
  - Shock [Recovered/Resolved]
  - Peptic ulcer haemorrhage [Unknown]
  - Haematochezia [Recovering/Resolving]
